FAERS Safety Report 9592297 (Version 3)
Quarter: 2014Q2

REPORT INFORMATION
  Report Type: Other
  Country: AR (occurrence: AR)
  Receive Date: 20131004
  Receipt Date: 20140626
  Transmission Date: 20141212
  Serious: Yes (Other)
  Sender: FDA-Public Use
  Company Number: AR-SHIRE-ALL1-2013-06614

PATIENT
  Age: 5 Month
  Sex: Male
  Weight: 12.5 kg

DRUGS (2)
  1. ELAPRASE [Suspect]
     Indication: MUCOPOLYSACCHARIDOSIS II
     Dosage: 5 MG (2.5 ML), UNKNOWN
     Route: 041
     Dates: start: 2013
  2. ELAPRASE [Suspect]
     Dosage: UNK
     Route: 041
     Dates: start: 20140617

REACTIONS (9)
  - Staphylococcal infection [Recovered/Resolved]
  - Oxygen saturation decreased [Unknown]
  - Chills [Recovered/Resolved]
  - Crying [Unknown]
  - Discomfort [Unknown]
  - Infusion related reaction [Recovered/Resolved]
  - Pyrexia [Recovered/Resolved]
  - Rash generalised [Recovered/Resolved]
  - Off label use [Not Recovered/Not Resolved]
